FAERS Safety Report 20643940 (Version 3)
Quarter: 2022Q2

REPORT INFORMATION
  Report Type: Spontaneous
  Country: BR (occurrence: BR)
  Receive Date: 20220328
  Receipt Date: 20220415
  Transmission Date: 20220721
  Serious: Yes (Other)
  Sender: FDA-Public Use
  Company Number: BR-BoehringerIngelheim-2022-BI-159909

PATIENT
  Age: 62 Year
  Sex: Male

DRUGS (1)
  1. METALYSE [Suspect]
     Active Substance: TENECTEPLASE
     Indication: Infarction
     Dosage: 50MG 1 VIAL/APPLICATION ACCORDING TO THE PATIENT^S WEIGHT?POWDER AND SYRINGE, INJECTED
     Route: 050
     Dates: start: 20220127, end: 20220127

REACTIONS (3)
  - Drug ineffective [Unknown]
  - Product complaint [Unknown]
  - No adverse event [Unknown]

NARRATIVE: CASE EVENT DATE: 20220127
